FAERS Safety Report 14266369 (Version 1)
Quarter: 2017Q4

REPORT INFORMATION
  Report Type: Spontaneous
  Country: US (occurrence: None)
  Receive Date: 20171208
  Receipt Date: 20171208
  Transmission Date: 20180321
  Serious: Yes (Other)
  Sender: FDA-Public Use
  Company Number: None

PATIENT
  Age: 40 Year
  Sex: Female

DRUGS (1)
  1. TRACLEER [Suspect]
     Active Substance: BOSENTAN
     Indication: PULMONARY ARTERIAL HYPERTENSION
     Route: 048
     Dates: start: 201606

REACTIONS (6)
  - Blood potassium decreased [None]
  - Abdominal pain [None]
  - Nausea [None]
  - Vomiting [None]
  - Hepatic enzyme increased [None]
  - Cholecystitis [None]

NARRATIVE: CASE EVENT DATE: 20171117
